FAERS Safety Report 7767466-0 (Version None)
Quarter: 2011Q3

REPORT INFORMATION
  Report Type: 
  Country: None (occurrence: None)
  Receive Date: 20110922
  Receipt Date: 20110909
  Transmission Date: 20111222
  Serious: Yes (Other)
  Sender: FDA-Public Use
  Company Number: US-BAYER-2011-003481

PATIENT
  Age: 23 Year
  Sex: Female
  Weight: 59 kg

DRUGS (4)
  1. NEXIUM [Concomitant]
     Dosage: 40 MG, BID
     Route: 048
  2. YAZ [Suspect]
     Indication: ORAL CONTRACEPTION
     Dosage: UNK
     Dates: start: 20080601, end: 20080801
  3. YAZ [Suspect]
     Dosage: UNK
     Dates: start: 20081001, end: 20090401
  4. BELLADONNA ALK-PHENOBARBITAL [Concomitant]
     Dosage: UNK UNK, BID
     Route: 048

REACTIONS (4)
  - INJURY [None]
  - PAIN [None]
  - BILIARY DYSKINESIA [None]
  - GALLBLADDER DISORDER [None]
